FAERS Safety Report 4909071-7 (Version None)
Quarter: 2006Q1

REPORT INFORMATION
  Report Type: 
  Country: None (occurrence: None)
  Receive Date: 20060209
  Receipt Date: 20060209
  Transmission Date: 20060701
  Serious: Yes (Hospitalization)
  Sender: FDA-Public Use
  Company Number: None

PATIENT

DRUGS (2)
  1. ISOVUE-300 [Suspect]
     Indication: ANGIOGRAM
     Dosage: 100 ML ONCE IV
     Route: 042
     Dates: start: 20060206, end: 20060206
  2. ISOVUE-300 [Suspect]
     Indication: ANGIOGRAM
     Dosage: 100 ML ONCE IV
     Route: 042
     Dates: start: 20060207, end: 20060207

REACTIONS (3)
  - HYPERTENSION [None]
  - TACHYCARDIA [None]
  - VASODILATATION [None]
